FAERS Safety Report 23570926 (Version 2)
Quarter: 2024Q1

REPORT INFORMATION
  Report Type: Spontaneous
  Country: FR (occurrence: FR)
  Receive Date: 20240227
  Receipt Date: 20240307
  Transmission Date: 20240410
  Serious: Yes (Hospitalization, Other)
  Sender: FDA-Public Use
  Company Number: FR-BAXTER-2023BAX039427

PATIENT
  Age: 73 Year
  Sex: Female
  Weight: 71 kg

DRUGS (15)
  1. CYCLOPHOSPHAMIDE [Suspect]
     Active Substance: CYCLOPHOSPHAMIDE
     Indication: Diffuse large B-cell lymphoma
     Dosage: 1267.5 MG, EVERY 3 WEEKS (29-SEP-2023 00:00)
     Route: 042
  2. CYCLOPHOSPHAMIDE [Suspect]
     Active Substance: CYCLOPHOSPHAMIDE
     Dosage: 1315 MG, EVERY 3 WEEKS (START DATE: 18-AUG-2023)
     Route: 042
     Dates: end: 20230818
  3. CYCLOPHOSPHAMIDE [Suspect]
     Active Substance: CYCLOPHOSPHAMIDE
     Dosage: 1316 MG, EVERY 3 WEEKS (START/STOP DATE- 08-SEP-2023)
     Route: 042
  4. CYCLOPHOSPHAMIDE [Suspect]
     Active Substance: CYCLOPHOSPHAMIDE
     Dosage: 1325 MG, EVERY 3 WEEKS
     Route: 042
     Dates: start: 20230727, end: 20230727
  5. DOXORUBICIN [Suspect]
     Active Substance: DOXORUBICIN
     Dosage: 84.4 MG, EVERY 3 WEEKS, ONGOING
     Route: 042
     Dates: start: 20230929
  6. DOXORUBICIN [Suspect]
     Active Substance: DOXORUBICIN
     Dosage: 87.8 MG, EVERY 3 WEEKS (START DATE-18-AUG-2023; STOP DATE- 08-SEP-23)
     Route: 042
  7. DOXORUBICIN [Suspect]
     Active Substance: DOXORUBICIN
     Indication: Diffuse large B-cell lymphoma
     Dosage: 88.4 MG, EVERY 3 WEEKS
     Route: 042
     Dates: start: 20230727, end: 20230727
  8. EPCORITAMAB [Suspect]
     Active Substance: EPCORITAMAB
     Indication: Diffuse large B-cell lymphoma
     Dosage: 0.16 MG PRIMING DOSE; C1, D1, TOTAL
     Route: 058
     Dates: start: 20230728, end: 20230728
  9. EPCORITAMAB [Suspect]
     Active Substance: EPCORITAMAB
     Dosage: 0.8 MG INTERMEDIATE DOSE; C1, D8, TOTAL (START/STOP DATE: 04-AUG-2023)
     Route: 058
  10. EPCORITAMAB [Suspect]
     Active Substance: EPCORITAMAB
     Dosage: 48 MG FULL DOSE, EVERY 1 WEEKS, ONGOING (START DATE- 11-AUG-2023)
     Route: 058
  11. PREDNISONE [Suspect]
     Active Substance: PREDNISONE
     Indication: Diffuse large B-cell lymphoma
     Dosage: 100 MG, EVERY 1 DAYS, ONGOING
     Route: 048
     Dates: start: 20230727
  12. RITUXIMAB [Suspect]
     Active Substance: RITUXIMAB
     Indication: Diffuse large B-cell lymphoma
     Dosage: 660 MG, EVERY 3 WEEKS, ONGOING
     Route: 042
     Dates: start: 20230727
  13. VINCRISTINE [Suspect]
     Active Substance: VINCRISTINE
     Indication: Diffuse large B-cell lymphoma
     Dosage: 2 MG, EVERY 3 WEEKS, ONGOING (START DATE- 27-JUL-2023)
     Route: 042
  14. POLYETHYLENE GLYCOLS [Concomitant]
     Active Substance: POLYETHYLENE GLYCOLS
     Indication: Constipation prophylaxis
     Dosage: 2 BAG, 2/DAYS, (START DATE: 2023) ROUTE OF ADMIN (FREE TEXT): UNKNOWN ROUTE
     Route: 065
  15. PANTOPRAZOLE [Concomitant]
     Active Substance: PANTOPRAZOLE
     Indication: Gastrointestinal disorder prophylaxis
     Dosage: 40 MG, 2/DAYS, (START DATE: 2023) ROUTE OF ADMIN (FREE TEXT): UNKNOWN ROUTE
     Route: 065
     Dates: start: 2023

REACTIONS (4)
  - Gastric perforation [Recovered/Resolved]
  - Abdominal tenderness [Recovered/Resolved]
  - Abdominal pain upper [Recovered/Resolved]
  - Haematemesis [Recovered/Resolved]

NARRATIVE: CASE EVENT DATE: 20230801
